FAERS Safety Report 5298931-6 (Version None)
Quarter: 2007Q2

REPORT INFORMATION
  Report Type: 
  Country: None (occurrence: None)
  Receive Date: 20070417
  Receipt Date: 20070403
  Transmission Date: 20071010
  Serious: Yes (Other)
  Sender: FDA-Public Use
  Company Number: GBWYE335003APR07

PATIENT
  Sex: Female
  Weight: 45 kg

DRUGS (1)
  1. ENBREL [Suspect]
     Indication: DRUG USE FOR UNKNOWN INDICATION
     Route: 058
     Dates: start: 20060918, end: 20061121

REACTIONS (2)
  - ABDOMINAL MASS [None]
  - BREAST CANCER [None]
